FAERS Safety Report 7683667-4 (Version None)
Quarter: 2011Q3

REPORT INFORMATION
  Report Type: 
  Country: None (occurrence: None)
  Receive Date: 20110815
  Receipt Date: 20110805
  Transmission Date: 20111222
  Serious: Yes (Hospitalization)
  Sender: FDA-Public Use
  Company Number: US-ASTRAZENECA-2011SE47342

PATIENT
  Age: 66 Year

DRUGS (13)
  1. LIDOCAINE [Concomitant]
  2. ZOFRAN [Concomitant]
  3. MEGASE [Concomitant]
  4. VIT B-12 [Concomitant]
  5. COREG [Concomitant]
  6. VICODIN [Concomitant]
  7. CALCIUM CARBONATE [Concomitant]
  8. CYMBALTA [Concomitant]
  9. NEXIUM [Suspect]
     Route: 048
  10. VIT.D [Concomitant]
  11. PLAVIX [Concomitant]
  12. DICYCLOMINE [Concomitant]
  13. DIAZEPAM [Concomitant]

REACTIONS (10)
  - CORONARY ARTERIAL STENT INSERTION [None]
  - WEIGHT DECREASED [None]
  - APHAGIA [None]
  - NEUROPATHY PERIPHERAL [None]
  - MYOCARDIAL INFARCTION [None]
  - MENTAL IMPAIRMENT [None]
  - MALAISE [None]
  - HIP FRACTURE [None]
  - GASTRIC DISORDER [None]
  - CARDIAC FAILURE CONGESTIVE [None]
